FAERS Safety Report 6528091-2 (Version None)
Quarter: 2010Q1

REPORT INFORMATION
  Report Type: 
  Country: None (occurrence: None)
  Receive Date: 20100106
  Receipt Date: 20091231
  Transmission Date: 20100710
  Serious: Yes (Other)
  Sender: FDA-Public Use
  Company Number: CA-B.I. PHARMACEUTICALS,INC./RIDGEFIELD-2010-CN-00004CN

PATIENT
  Sex: Female

DRUGS (3)
  1. VIRAMUNE [Suspect]
     Route: 065
  2. LAMIVUDINE [Suspect]
     Route: 065
  3. ZIDOVUDINE [Suspect]
     Route: 065

REACTIONS (1)
  - OLIGOHYDRAMNIOS [None]
